FAERS Safety Report 6981759-6 (Version None)
Quarter: 2010Q3

REPORT INFORMATION
  Report Type: 
  Country: None (occurrence: None)
  Receive Date: 20100914
  Receipt Date: 20091021
  Transmission Date: 20110219
  Serious: No
  Sender: FDA-Public Use
  Company Number: US-PFIZER INC-2006051704

PATIENT
  Sex: Female
  Weight: 86.2 kg

DRUGS (7)
  1. LYRICA [Suspect]
     Dosage: 75 MG, 2X/DAY
     Dates: start: 20051201
  2. ZIAC [Concomitant]
     Dosage: UNK
  3. ALPRAZOLAM [Concomitant]
     Dosage: UNK
  4. METFORMIN HCL [Concomitant]
     Dosage: UNK
  5. GLIPIZIDE [Concomitant]
     Dosage: UNK
  6. FLEXERIL [Concomitant]
     Dosage: UNK
  7. VITAMINS [Concomitant]
     Dosage: UNK

REACTIONS (3)
  - HYPOAESTHESIA [None]
  - INCORRECT DOSE ADMINISTERED [None]
  - PAIN [None]
